FAERS Safety Report 18530724 (Version 7)
Quarter: 2021Q1

REPORT INFORMATION
  Report Type: Report from Study
  Country: CO (occurrence: CO)
  Receive Date: 20201121
  Receipt Date: 20210303
  Transmission Date: 20210419
  Serious: Yes (Hospitalization, Other)
  Sender: FDA-Public Use
  Company Number: CO-SHIRE-CO202004654

PATIENT
  Age: 37 Year
  Sex: Female
  Weight: 52 kg

DRUGS (10)
  1. HUMAN IMMUNOGLOBULIN; HYALURONIDASE [Suspect]
     Active Substance: HUMAN IMMUNOGLOBULIN G\HYALURONIDASE RECOMBINANT HUMAN
     Dosage: 10 GRAM
     Route: 065
  2. HUMAN IMMUNOGLOBULIN; HYALURONIDASE [Suspect]
     Active Substance: HUMAN IMMUNOGLOBULIN G\HYALURONIDASE RECOMBINANT HUMAN
     Dosage: 30 GRAM
     Route: 058
     Dates: start: 20191113
  3. HUMAN IMMUNOGLOBULIN; HYALURONIDASE [Suspect]
     Active Substance: HUMAN IMMUNOGLOBULIN G\HYALURONIDASE RECOMBINANT HUMAN
     Dosage: 5 GRAM
     Route: 065
  4. AMITRIPTILINA [AMITRIPTYLINE] [Concomitant]
     Active Substance: AMITRIPTYLINE HYDROCHLORIDE
     Indication: PRODUCT USED FOR UNKNOWN INDICATION
     Dosage: UNK
  5. HUMAN IMMUNOGLOBULIN; HYALURONIDASE [Suspect]
     Active Substance: HUMAN IMMUNOGLOBULIN G\HYALURONIDASE RECOMBINANT HUMAN
     Indication: PRIMARY IMMUNODEFICIENCY SYNDROME
     Dosage: 100 MILLIGRAM PER MILLILITRE
     Route: 058
     Dates: start: 20191113
  6. ESOMEPRAZOL [ESOMEPRAZOLE] [Concomitant]
     Active Substance: ESOMEPRAZOLE
     Indication: PRODUCT USED FOR UNKNOWN INDICATION
     Dosage: UNK
  7. FOSFOMICINA [FOSFOMYCIN] [Concomitant]
     Active Substance: FOSFOMYCIN
     Indication: PRODUCT USED FOR UNKNOWN INDICATION
     Dosage: UNK
  8. Z?BEC [VITAMINS NOS;ZINC SULFATE] [Concomitant]
     Indication: PRODUCT USED FOR UNKNOWN INDICATION
     Dosage: UNK
  9. VITAMIN D [COLECALCIFEROL] [Concomitant]
     Active Substance: CHOLECALCIFEROL
     Indication: PRODUCT USED FOR UNKNOWN INDICATION
     Dosage: UNK
  10. HUMAN IMMUNOGLOBULIN; HYALURONIDASE [Suspect]
     Active Substance: HUMAN IMMUNOGLOBULIN G\HYALURONIDASE RECOMBINANT HUMAN
     Dosage: 25 GRAM
     Route: 058
     Dates: start: 20201009

REACTIONS (31)
  - Genital herpes [Recovering/Resolving]
  - Allergic pharyngitis [Recovering/Resolving]
  - Suspected COVID-19 [Recovered/Resolved]
  - Blister [Recovering/Resolving]
  - Product dose omission issue [Not Recovered/Not Resolved]
  - Hospitalisation [Recovered/Resolved]
  - Unevaluable event [Recovering/Resolving]
  - General physical health deterioration [Not Recovered/Not Resolved]
  - Dental caries [Not Recovered/Not Resolved]
  - Chills [Recovering/Resolving]
  - Nasal congestion [Recovered/Resolved]
  - Vessel puncture site pain [Recovered/Resolved]
  - Malaise [Not Recovered/Not Resolved]
  - Oedema genital [Recovered/Resolved]
  - Infusion related reaction [Recovered/Resolved]
  - Feeling abnormal [Recovered/Resolved]
  - Oral herpes [Recovering/Resolving]
  - Weight increased [Recovering/Resolving]
  - Headache [Not Recovered/Not Resolved]
  - Anosmia [Recovered/Resolved]
  - Cystitis [Recovering/Resolving]
  - Pain [Recovering/Resolving]
  - Back pain [Recovering/Resolving]
  - Wrong schedule [Unknown]
  - Ageusia [Recovered/Resolved]
  - Herpes virus infection [Recovering/Resolving]
  - Urinary tract infection [Not Recovered/Not Resolved]
  - Medication error [Unknown]
  - Dysuria [Recovering/Resolving]
  - Oropharyngeal pain [Not Recovered/Not Resolved]
  - Product availability issue [Unknown]

NARRATIVE: CASE EVENT DATE: 20200113
